FAERS Safety Report 11472297 (Version 6)
Quarter: 2018Q4

REPORT INFORMATION
  Report Type: Spontaneous
  Country: US (occurrence: US)
  Receive Date: 20150908
  Receipt Date: 20181003
  Transmission Date: 20190204
  Serious: No
  Sender: FDA-Public Use
  Company Number: US-SA-2015SA096431

PATIENT
  Age: 71 Year
  Sex: Female

DRUGS (20)
  1. SOLOSTAR [Suspect]
     Active Substance: DEVICE
     Dates: start: 201505
  2. TOUJEO [Suspect]
     Active Substance: INSULIN GLARGINE
     Indication: TYPE 2 DIABETES MELLITUS
     Dosage: UNK UNK,HS
     Route: 051
     Dates: start: 201505
  3. TOUJEO [Suspect]
     Active Substance: INSULIN GLARGINE
     Dosage: UNK UNK,HS
     Route: 051
     Dates: start: 201505
  4. TOUJEO [Suspect]
     Active Substance: INSULIN GLARGINE
     Dosage: 19 DF,QD
     Route: 051
     Dates: start: 201603
  5. CORTISONE [Concomitant]
     Active Substance: CORTISONE\HYDROCORTISONE
     Indication: SCIATICA
     Dosage: UNK
  6. SOLOSTAR [Suspect]
     Active Substance: DEVICE
     Dates: start: 201603
  7. SOLOSTAR [Suspect]
     Active Substance: DEVICE
     Dates: start: 201603
  8. TOUJEO [Suspect]
     Active Substance: INSULIN GLARGINE
     Dosage: 12 DF,QD
     Route: 051
  9. TOUJEO [Suspect]
     Active Substance: INSULIN GLARGINE
     Dosage: 12 DF,QD
     Route: 051
  10. SOLOSTAR [Suspect]
     Active Substance: DEVICE
     Indication: TYPE 2 DIABETES MELLITUS
     Dates: start: 201505
  11. SOLOSTAR [Suspect]
     Active Substance: DEVICE
     Dates: start: 201603
  12. TOUJEO [Suspect]
     Active Substance: INSULIN GLARGINE
     Dosage: 12 DF,QD
     Route: 051
  13. SOLOSTAR [Concomitant]
     Active Substance: DEVICE
  14. SOLOSTAR [Suspect]
     Active Substance: DEVICE
  15. TOUJEO [Suspect]
     Active Substance: INSULIN GLARGINE
     Dosage: 19 DF,QD
     Route: 051
     Dates: start: 201603
  16. INSULIN GLARGINE [Concomitant]
     Active Substance: INSULIN GLARGINE
     Dosage: UNK
  17. SOLOSTAR [Suspect]
     Active Substance: DEVICE
  18. SOLOSTAR [Suspect]
     Active Substance: DEVICE
  19. TOUJEO [Suspect]
     Active Substance: INSULIN GLARGINE
     Dosage: 19 DF,QD
     Route: 051
     Dates: start: 201603
  20. INSULIN [Concomitant]
     Active Substance: INSULIN NOS
     Dosage: UNK

REACTIONS (17)
  - Injection site discolouration [Unknown]
  - Vision blurred [Unknown]
  - Joint swelling [Unknown]
  - Eating disorder [Unknown]
  - Medication error [Unknown]
  - Chest discomfort [Recovered/Resolved]
  - Glycosylated haemoglobin decreased [Unknown]
  - Hyperaesthesia [Unknown]
  - Dizziness [Unknown]
  - Device issue [Unknown]
  - Confusional state [Unknown]
  - Malaise [Unknown]
  - Injection site haemorrhage [Unknown]
  - Weight increased [Unknown]
  - Product storage error [Unknown]
  - Injury associated with device [Unknown]
  - Blood glucose decreased [Unknown]
